FAERS Safety Report 25986198 (Version 4)
Quarter: 2025Q4

REPORT INFORMATION
  Report Type: Spontaneous
  Country: EU (occurrence: EU)
  Receive Date: 20251031
  Receipt Date: 20251124
  Transmission Date: 20260117
  Serious: Yes (Other)
  Sender: PFIZER
  Company Number: EU-PFIZER INC-202500214890

PATIENT
  Sex: Male

DRUGS (3)
  1. RAPAMUNE [Suspect]
     Active Substance: SIROLIMUS
     Indication: Sturge-Weber syndrome
     Dosage: UNK
     Route: 048
     Dates: start: 202405
  2. RAPAMUNE [Suspect]
     Active Substance: SIROLIMUS
     Dosage: 2 ML IN THE MORNING AND 3 ML AT NIGHT
     Route: 048
     Dates: start: 20251017
  3. TOPIRAMATE [Concomitant]
     Active Substance: TOPIRAMATE
     Dosage: UNK

REACTIONS (4)
  - Seizure [Unknown]
  - Nasopharyngitis [Unknown]
  - Condition aggravated [Unknown]
  - Off label use [Unknown]

NARRATIVE: CASE EVENT DATE: 20251017
